FAERS Safety Report 9885601 (Version 1)
Quarter: 2014Q1

REPORT INFORMATION
  Report Type: Spontaneous
  Country: US (occurrence: US)
  Receive Date: 20140210
  Receipt Date: 20140210
  Transmission Date: 20141002
  Serious: No
  Sender: FDA-Public Use
  Company Number: US-GILEAD-2011-0042767

PATIENT
  Sex: Female

DRUGS (6)
  1. VIREAD [Suspect]
     Indication: CHRONIC HEPATITIS B
  2. AMLODIPINE [Concomitant]
     Indication: HYPERTENSION
  3. MULTIVITAMIN [Concomitant]
  4. OMEGA 3 FISH OIL [Concomitant]
  5. CALCIUM [Concomitant]
  6. GINSENG [Concomitant]

REACTIONS (1)
  - Rash [Unknown]
